FAERS Safety Report 7636595-4 (Version None)
Quarter: 2011Q3

REPORT INFORMATION
  Report Type: 
  Country: None (occurrence: None)
  Receive Date: 20110726
  Receipt Date: 20110715
  Transmission Date: 20111222
  Serious: No
  Sender: FDA-Public Use
  Company Number: US-BIOGENIDEC-2011BI026470

PATIENT
  Age: 30 Year
  Sex: Male

DRUGS (3)
  1. AVONEX [Concomitant]
     Indication: MULTIPLE SCLEROSIS
     Route: 030
     Dates: start: 20101106
  2. TYSABRI [Suspect]
     Indication: MULTIPLE SCLEROSIS
     Route: 042
     Dates: start: 20091223, end: 20100903
  3. TYLENOL-500 [Concomitant]
     Indication: INFLUENZA LIKE ILLNESS

REACTIONS (4)
  - VISUAL IMPAIRMENT [None]
  - PAIN [None]
  - ANXIETY [None]
  - FATIGUE [None]
